APPROVED DRUG PRODUCT: HER STYLE
Active Ingredient: LEVONORGESTREL
Strength: 1.5MG
Dosage Form/Route: TABLET;ORAL
Application: A207976 | Product #001
Applicant: NOVAST LABORATORIES LTD
Approved: Mar 11, 2016 | RLD: No | RS: No | Type: OTC